FAERS Safety Report 14608219 (Version 2)
Quarter: 2018Q1

REPORT INFORMATION
  Report Type: Report from Study
  Country: MX (occurrence: MX)
  Receive Date: 20180307
  Receipt Date: 20180322
  Transmission Date: 20180509
  Serious: Yes (Other)
  Sender: FDA-Public Use
  Company Number: PHHY2017MX033814

PATIENT
  Sex: Female
  Weight: 76 kg

DRUGS (6)
  1. OMEPRAZOLE. [Concomitant]
     Active Substance: OMEPRAZOLE
     Indication: PRODUCT USED FOR UNKNOWN INDICATION
     Route: 065
  2. VITAMAN [Concomitant]
     Active Substance: MINERALS\VITAMINS
     Indication: PRODUCT USED FOR UNKNOWN INDICATION
     Route: 065
  3. STALEVO [Suspect]
     Active Substance: CARBIDOPA\ENTACAPONE\LEVODOPA
     Dosage: 2 DF (CARBIDOPA 25 MG, ENTACAPONE 200 MG, LEVODOPA 100 MG), QD
     Route: 048
  4. AZILECT [Concomitant]
     Active Substance: RASAGILINE MESYLATE
     Indication: PARKINSON^S DISEASE
     Dosage: 2 DF, (STARTED 5 YEARS AGO AND STOPPED 2 YEARS AGO)
     Route: 048
  5. ASILAC [Concomitant]
     Indication: PARKINSON^S DISEASE
     Dosage: 1 MG, UNK (SINCE 5 YEARS AGO AND STOPPED ON 2 YEARS AGO)
     Route: 048
  6. STALEVO [Suspect]
     Active Substance: CARBIDOPA\ENTACAPONE\LEVODOPA
     Indication: PARKINSON^S DISEASE
     Dosage: 3 DF (CARBIDOPA 25 MG, ENTACAPONE 200 MG, LEVODOPA 100), QD
     Route: 065

REACTIONS (15)
  - Hypertension [Recovering/Resolving]
  - Decreased appetite [Unknown]
  - Tremor [Unknown]
  - Vomiting [Unknown]
  - Influenza [Recovered/Resolved]
  - Tongue movement disturbance [Not Recovered/Not Resolved]
  - Diarrhoea [Unknown]
  - Dizziness [Unknown]
  - Speech disorder [Not Recovered/Not Resolved]
  - Drug ineffective [Unknown]
  - Pyrexia [Recovered/Resolved]
  - Hypoacusis [Not Recovered/Not Resolved]
  - Constipation [Not Recovered/Not Resolved]
  - Feeling abnormal [Unknown]
  - Fatigue [Unknown]
